FAERS Safety Report 16039457 (Version 3)
Quarter: 2019Q2

REPORT INFORMATION
  Report Type: Spontaneous
  Country: US (occurrence: US)
  Receive Date: 20190306
  Receipt Date: 20190408
  Transmission Date: 20190711
  Serious: Yes (Other)
  Sender: FDA-Public Use
  Company Number: US-GLAXOSMITHKLINE-US2019GSK040414

PATIENT
  Sex: Female

DRUGS (2)
  1. PREVACID [Suspect]
     Active Substance: LANSOPRAZOLE
     Indication: PRODUCT USED FOR UNKNOWN INDICATION
     Dosage: UNK
     Route: 065
  2. PREVACID [Suspect]
     Active Substance: LANSOPRAZOLE
     Indication: PRODUCT USED FOR UNKNOWN INDICATION
     Dosage: UNK
     Route: 065

REACTIONS (27)
  - Hydronephrosis [Unknown]
  - Nephrolithiasis [Unknown]
  - Renal failure [Unknown]
  - Kidney fibrosis [Unknown]
  - Renal artery arteriosclerosis [Unknown]
  - Polyuria [Unknown]
  - Urinary incontinence [Unknown]
  - Blood creatinine increased [Unknown]
  - Nephritic syndrome [Unknown]
  - Pollakiuria [Unknown]
  - Acute kidney injury [Unknown]
  - Nephrosclerosis [Unknown]
  - Glomerulonephritis [Unknown]
  - Urine output decreased [Unknown]
  - Blood urine present [Unknown]
  - Dialysis [Unknown]
  - Renal disorder [Unknown]
  - Proteinuria [Unknown]
  - End stage renal disease [Unknown]
  - Renal injury [Unknown]
  - Tubulointerstitial nephritis [Unknown]
  - Glomerulosclerosis [Unknown]
  - Pyelocaliectasis [Unknown]
  - Azotaemia [Unknown]
  - Chronic kidney disease [Unknown]
  - Dysuria [Unknown]
  - Nephrogenic anaemia [Unknown]
